FAERS Safety Report 14407518 (Version 2)
Quarter: 2018Q3

REPORT INFORMATION
  Report Type: Report from Study
  Country: US (occurrence: US)
  Receive Date: 20180118
  Receipt Date: 20180706
  Transmission Date: 20181010
  Serious: Yes (Other)
  Sender: FDA-Public Use
  Company Number: US-GILEAD-2018-0316273

PATIENT
  Age: 54 Year
  Sex: Male

DRUGS (1)
  1. LEDIPASVIR/SOFOSBUVIR [Suspect]
     Active Substance: LEDIPASVIR\SOFOSBUVIR
     Indication: CHRONIC HEPATITIS C
     Dosage: 1 DF, QD
     Route: 048
     Dates: start: 20171231, end: 20180325

REACTIONS (5)
  - Intentional dose omission [Recovered/Resolved]
  - Headache [Unknown]
  - Fatigue [Unknown]
  - Gastrointestinal pain [Unknown]
  - Angina pectoris [Unknown]

NARRATIVE: CASE EVENT DATE: 20180115
